FAERS Safety Report 5629962-1 (Version None)
Quarter: 2008Q1

REPORT INFORMATION
  Report Type: 
  Country: None (occurrence: None)
  Receive Date: 20080218
  Receipt Date: 20080211
  Transmission Date: 20080703
  Serious: Yes (Hospitalization)
  Sender: FDA-Public Use
  Company Number: KR-ROCHE-538438

PATIENT
  Age: 56 Year
  Sex: Male
  Weight: 54.3 kg

DRUGS (7)
  1. CAPECITABINE [Suspect]
     Indication: GASTRIC CANCER
     Dosage: GIVEN ON DAYS ONE TO FOURTEEN EVERY THREE WEEKS.
     Route: 048
     Dates: start: 20071018, end: 20071220
  2. CAPECITABINE [Suspect]
     Dosage: GIVEN ON DAYS ONE TO FOURTEEN EVERY THREE WEEKS.
     Route: 048
     Dates: start: 20080108
  3. TRASTUZUMAB [Suspect]
     Indication: GASTRIC CANCER
     Dosage: DOSAGE FORM REPORTED AS INFUSION. 8MG/KG GIVEN AS LOADING DOSE ON DAY ONE.
     Route: 042
     Dates: start: 20071018, end: 20071018
  4. TRASTUZUMAB [Suspect]
     Dosage: DOSAGE FORM REPORTED AS INFUSION. 6MG/KG GIVEN AS MAINTENANCE DOSE ON DAY ONE EVERY THREE WEEKS.
     Route: 042
     Dates: start: 20071018, end: 20071206
  5. TRASTUZUMAB [Suspect]
     Dosage: DOSAGE FORM REPORTED AS INFUSION. 6MG/KG GIVEN AS MAINTENANCE DOSE ON DAY ONE EVERY THREE WEEKS.
     Route: 042
     Dates: start: 20080108
  6. CISPLATIN [Suspect]
     Indication: GASTRIC CANCER
     Dosage: DOSAGE FORM REPORTED AS INFUSION. GIVEN ON DAY ONE EVERY THREE WEEKS.
     Route: 042
     Dates: start: 20071018, end: 20071206
  7. CISPLATIN [Suspect]
     Dosage: DOSAGE FORM REPORTED AS INFUSION. GIVEN ON DAY ONE EVERY THREE WEEKS.
     Route: 042
     Dates: start: 20080108

REACTIONS (1)
  - EJECTION FRACTION DECREASED [None]
